FAERS Safety Report 9343638 (Version 2)
Quarter: 2013Q2

REPORT INFORMATION
  Report Type: Spontaneous
  Country: GB (occurrence: None)
  Receive Date: 20130610
  Receipt Date: 20130613
  Transmission Date: 20140414
  Serious: Yes (Hospitalization)
  Sender: FDA-Public Use
  Company Number: AUR-APL-2013-04645

PATIENT
  Age: 70 Year
  Sex: Male

DRUGS (13)
  1. PERINDOPRIL [Suspect]
     Indication: PROPHYLAXIS
     Dosage: (2 MG, 1 IN 1 D) STOPPED
     Route: 048
  2. INDAPAMIDE [Suspect]
     Dosage: 2.5 MG (2.5 MG, 1 IN 1 D), ORAL
     Route: 048
  3. ACIDEX (RANITIDINE HYDROCHLORIDE) [Concomitant]
  4. AMLODIPINE (AMLODIPINE) [Concomitant]
  5. GABAPENTIN (GABAPENTIN) [Concomitant]
  6. GLYCERYL TRINITRATE (GLYCERYL TRINITRATE) [Concomitant]
  7. LAXIDO (ELECTROLYTES NOS W/MACROGOL 3350) [Concomitant]
  8. MESALAZINE (MESALAZINE) [Concomitant]
  9. PARACETAMOL (PARACETAMOL) [Concomitant]
  10. SALBUTAMOL (SALBUTAMOL) [Concomitant]
  11. SENNA (SENNA ALEXANDRINA) [Concomitant]
  12. SYMBICORT [Concomitant]
  13. XYLOPROCT (ANAMANTLE HC) [Concomitant]

REACTIONS (4)
  - Hyponatraemia [None]
  - Convulsion [None]
  - Confusional state [None]
  - Headache [None]
